FAERS Safety Report 9708693 (Version 2)
Quarter: 2014Q3

REPORT INFORMATION
  Report Type: Spontaneous
  Country: US (occurrence: US)
  Receive Date: 20131125
  Receipt Date: 20140805
  Transmission Date: 20150326
  Serious: Yes (Other)
  Sender: FDA-Public Use
  Company Number: US-BRISTOL-MYERS SQUIBB COMPANY-19849918

PATIENT
  Age: 57 Year
  Sex: Female

DRUGS (1)
  1. BYETTA [Suspect]
     Active Substance: EXENATIDE
     Dates: start: 200806

REACTIONS (1)
  - Thyroid cancer metastatic [Unknown]

NARRATIVE: CASE EVENT DATE: 201210
